FAERS Safety Report 5513033-9 (Version None)
Quarter: 2007Q4

REPORT INFORMATION
  Report Type: 
  Country: None (occurrence: None)
  Receive Date: 20071112
  Receipt Date: 20071102
  Transmission Date: 20080405
  Serious: Yes (Hospitalization)
  Sender: FDA-Public Use
  Company Number: JP-ROCHE-508811

PATIENT
  Age: 26 Year
  Sex: Male
  Weight: 73.4 kg

DRUGS (3)
  1. CAPECITABINE [Suspect]
     Dosage: GIVEN TWICE DAILY IN 3-WEEK CYCLES CONSISTING OF 2 WEEKS THERAPY FOLLOWED BY 1 WEEK WITHOUT THERAPY.
     Route: 048
     Dates: start: 20070221, end: 20070726
  2. BEVACIZUMAB [Suspect]
     Dosage: DOSAGE FORM REPORTED AS INJECTION.
     Route: 042
     Dates: start: 20070221, end: 20070719
  3. OXALIPLATIN [Suspect]
     Dosage: DOSAGE FORM REPORTED AS INJECTION.
     Route: 042
     Dates: start: 20070221, end: 20070719

REACTIONS (2)
  - CATHETER THROMBOSIS [None]
  - PULMONARY EMBOLISM [None]
